FAERS Safety Report 6158865-1 (Version None)
Quarter: 2009Q2

REPORT INFORMATION
  Report Type: 
  Country: None (occurrence: None)
  Receive Date: 20090413
  Receipt Date: 20080513
  Transmission Date: 20091009
  Serious: Yes (Other)
  Sender: FDA-Public Use
  Company Number: 08-025

PATIENT
  Age: 80 Year
  Sex: Female

DRUGS (2)
  1. PROPOXYPHENE NAPSYLATE AND ACETAMINOPHEN [Suspect]
  2. FENTANYL [Concomitant]

REACTIONS (1)
  - CHEST PAIN [None]
